FAERS Safety Report 17414833 (Version 1)
Quarter: 2020Q1

REPORT INFORMATION
  Report Type: Not Available
  Country: CA (occurrence: CA)
  Receive Date: 20200213
  Receipt Date: 20200213
  Transmission Date: 20200409
  Serious: Yes (Hospitalization)
  Sender: FDA-Public Use
  Company Number: CA-CELGENEUS-CAN-20200202676

PATIENT
  Sex: Male
  Weight: 81 kg

DRUGS (2)
  1. BETADERM [Suspect]
     Active Substance: BETAMETHASONE VALERATE
     Indication: PSORIASIS
     Route: 061
  2. OTEZLA [Suspect]
     Active Substance: APREMILAST
     Indication: PSORIASIS
     Route: 048

REACTIONS (11)
  - Anal haemorrhage [Unknown]
  - Faeces discoloured [Unknown]
  - Full blood count decreased [Unknown]
  - Gait disturbance [Unknown]
  - Epistaxis [Unknown]
  - Loss of consciousness [Unknown]
  - Asthenia [Unknown]
  - Skin exfoliation [Unknown]
  - Weight decreased [Unknown]
  - Diarrhoea [Unknown]
  - Decreased appetite [Unknown]
